FAERS Safety Report 18986891 (Version 1)
Quarter: 2021Q1

REPORT INFORMATION
  Report Type: Spontaneous
  Country: US (occurrence: US)
  Receive Date: 20210309
  Receipt Date: 20210309
  Transmission Date: 20210420
  Serious: Yes (Hospitalization)
  Sender: FDA-Public Use
  Company Number: None

PATIENT
  Age: 66 Year
  Sex: Male
  Weight: 87.3 kg

DRUGS (7)
  1. DEXAMETHASONE 4MG [Concomitant]
     Active Substance: DEXAMETHASONE
  2. ACYCLOVIR 400MG [Concomitant]
     Active Substance: ACYCLOVIR
  3. ATORVASTATIN 10MG [Concomitant]
     Active Substance: ATORVASTATIN
  4. XPOVIO [Suspect]
     Active Substance: SELINEXOR
     Indication: PLASMA CELL MYELOMA
     Dosage: ?          OTHER FREQUENCY:TWICE PER WEEK;?
     Route: 048
     Dates: start: 20201014
  5. ASPIRIN 81MG [Concomitant]
     Active Substance: ASPIRIN
  6. BACTRIM DS 800?160MG [Concomitant]
  7. TYLENOL EX STR 500MG [Concomitant]

REACTIONS (1)
  - Dyspnoea [None]

NARRATIVE: CASE EVENT DATE: 20210302
